FAERS Safety Report 12053739 (Version 1)
Quarter: 2016Q1

REPORT INFORMATION
  Report Type: Spontaneous
  Country: FR (occurrence: FR)
  Receive Date: 20160209
  Receipt Date: 20160209
  Transmission Date: 20160526
  Serious: Yes (Hospitalization)
  Sender: FDA-Public Use
  Company Number: FR-PFIZER INC-2016058969

PATIENT
  Age: 80 Year
  Sex: Female

DRUGS (6)
  1. BIPRETERAX /06377001/ [Suspect]
     Active Substance: INDAPAMIDE\PERINDOPRIL
     Dosage: 1 DF, 1X/DAY
     Route: 048
  2. ATENOLOL. [Suspect]
     Active Substance: ATENOLOL
     Dosage: 100 MG, 1X/DAY
     Route: 048
  3. AMLOR [Suspect]
     Active Substance: AMLODIPINE BESYLATE
     Dosage: 5 MG, 1X/DAY
     Route: 048
  4. ALLOPURINOL. [Concomitant]
     Active Substance: ALLOPURINOL
     Dosage: 100 MG, 1X/DAY
  5. FENOFIBRATE. [Concomitant]
     Active Substance: FENOFIBRATE
  6. SIFROL [Suspect]
     Active Substance: PRAMIPEXOLE
     Dosage: 49 MG, SINGLE (70 TABLETS OF 0.7 MG)
     Route: 048
     Dates: start: 20151217, end: 20151217

REACTIONS (4)
  - Orthostatic hypotension [Recovered/Resolved]
  - Loss of consciousness [Recovered/Resolved]
  - Atrial fibrillation [Recovered/Resolved]
  - Fall [Recovered/Resolved]

NARRATIVE: CASE EVENT DATE: 20151217
